FAERS Safety Report 25751231 (Version 1)
Quarter: 2025Q3

REPORT INFORMATION
  Report Type: Spontaneous
  Country: US (occurrence: US)
  Receive Date: 20250902
  Receipt Date: 20250902
  Transmission Date: 20251021
  Serious: Yes (Death, Life-Threatening, Other)
  Sender: AMGEN
  Company Number: US-AMGEN-USASP2025173125

PATIENT
  Age: 58 Year
  Sex: Male

DRUGS (2)
  1. TARLATAMAB [Suspect]
     Active Substance: TARLATAMAB
     Indication: Small cell carcinoma
     Route: 065
  2. DURVALUMAB [Concomitant]
     Active Substance: DURVALUMAB
     Indication: Small cell carcinoma

REACTIONS (9)
  - Tumour lysis syndrome [Fatal]
  - Multiple organ dysfunction syndrome [Unknown]
  - Acute kidney injury [Unknown]
  - Liver injury [Recovered/Resolved]
  - Hypoxia [Unknown]
  - Hypovolaemic shock [Unknown]
  - Encephalopathy [Unknown]
  - Small cell carcinoma [Unknown]
  - Off label use [Unknown]
